FAERS Safety Report 5521576-7 (Version None)
Quarter: 2007Q4

REPORT INFORMATION
  Report Type: 
  Country: None (occurrence: None)
  Receive Date: 20071120
  Receipt Date: 20071113
  Transmission Date: 20080405
  Serious: Yes (Other)
  Sender: FDA-Public Use
  Company Number: DE-JNJFOC-20071007142

PATIENT
  Sex: Female
  Weight: 60 kg

DRUGS (6)
  1. HALOPERIDOL DECANOATE [Suspect]
     Indication: DRUG USE FOR UNKNOWN INDICATION
     Route: 042
  2. DIGIMERK MINOR [Concomitant]
     Route: 048
  3. XIPAMID [Concomitant]
     Route: 048
  4. ENAHEXAL [Concomitant]
     Route: 048
  5. AMLODIPINE [Concomitant]
     Route: 048
  6. SIMVAHEXAL [Concomitant]
     Route: 048

REACTIONS (2)
  - DRUG ADMINISTRATION ERROR [None]
  - SEDATION [None]
